FAERS Safety Report 26113704 (Version 1)
Quarter: 2025Q4

REPORT INFORMATION
  Report Type: Spontaneous
  Country: EU (occurrence: EU)
  Receive Date: 20251202
  Receipt Date: 20251202
  Transmission Date: 20260117
  Serious: Yes (Hospitalization)
  Sender: MYLAN
  Company Number: None

PATIENT
  Age: 22 Year
  Sex: Female

DRUGS (4)
  1. ACETAMINOPHEN [Suspect]
     Active Substance: ACETAMINOPHEN
     Indication: Migraine
     Dosage: 8 GRAM, TOTAL
     Dates: start: 20251019, end: 20251019
  2. ACETAMINOPHEN [Suspect]
     Active Substance: ACETAMINOPHEN
     Dosage: 8 GRAM, TOTAL
     Route: 048
     Dates: start: 20251019, end: 20251019
  3. ACETAMINOPHEN [Suspect]
     Active Substance: ACETAMINOPHEN
     Dosage: 8 GRAM, TOTAL
     Route: 048
     Dates: start: 20251019, end: 20251019
  4. ACETAMINOPHEN [Suspect]
     Active Substance: ACETAMINOPHEN
     Dosage: 8 GRAM, TOTAL
     Dates: start: 20251019, end: 20251019

REACTIONS (2)
  - Hepatic cytolysis [Recovered/Resolved]
  - Accidental overdose [Recovered/Resolved]

NARRATIVE: CASE EVENT DATE: 20251019
